FAERS Safety Report 4676060-X (Version None)
Quarter: 2005Q2

REPORT INFORMATION
  Report Type: 
  Country: None (occurrence: None)
  Receive Date: 20050527
  Receipt Date: 20050428
  Transmission Date: 20051028
  Serious: Yes (Other)
  Sender: FDA-Public Use
  Company Number: US-GLAXOSMITHKLINE-A0556340A

PATIENT
  Sex: Female

DRUGS (4)
  1. WELLBUTRIN [Suspect]
     Indication: ILL-DEFINED DISORDER
     Dosage: 450MG PER DAY
     Route: 048
  2. LAMICTAL [Concomitant]
  3. SYMBYAX [Concomitant]
  4. ZYPREXA [Concomitant]

REACTIONS (1)
  - CONVULSION [None]
